FAERS Safety Report 6310132-9 (Version None)
Quarter: 2009Q3

REPORT INFORMATION
  Report Type: 
  Country: None (occurrence: None)
  Receive Date: 20090814
  Receipt Date: 20090715
  Transmission Date: 20100115
  Serious: No
  Sender: FDA-Public Use
  Company Number: US-BAYER-200912455BCC

PATIENT
  Age: 17 Year
  Sex: Male
  Weight: 61 kg

DRUGS (1)
  1. ALEVE (CAPLET) [Suspect]
     Indication: NECK PAIN
     Dosage: TOOK 880 MG WITHIN A 24 HOURS PERIOD
     Route: 048
     Dates: start: 20090714

REACTIONS (2)
  - RASH [None]
  - RASH ERYTHEMATOUS [None]
